FAERS Safety Report 9242315 (Version 1)
Quarter: 2013Q2

REPORT INFORMATION
  Report Type: Report from Study
  Country: CA (occurrence: CA)
  Receive Date: 20130419
  Receipt Date: 20130419
  Transmission Date: 20140414
  Serious: Yes (Hospitalization)
  Sender: FDA-Public Use
  Company Number: CA-JNJFOC-20130407093

PATIENT
  Age: 15 Year
  Sex: Female
  Weight: 93 kg

DRUGS (2)
  1. REMICADE [Suspect]
     Indication: CROHN^S DISEASE
     Route: 042
     Dates: start: 201010
  2. FRISIUM [Concomitant]
     Indication: CONVULSION
     Dosage: PATIENT HAD TAKEN FRISIUM FOR CONVULSION IN THE PAST.
     Route: 065

REACTIONS (2)
  - Convulsion [Unknown]
  - Pyrexia [Unknown]
